FAERS Safety Report 8096625-5 (Version None)
Quarter: 2012Q1

REPORT INFORMATION
  Report Type: 
  Country: None (occurrence: None)
  Receive Date: 20120129
  Receipt Date: 20111130
  Transmission Date: 20120608
  Serious: No
  Sender: FDA-Public Use
  Company Number: US-ABBOTT-11P-163-0880047-00

PATIENT
  Age: 25 Year
  Sex: Female

DRUGS (5)
  1. DEPAKOTE [Concomitant]
     Indication: EPILEPSY
  2. HUMIRA [Suspect]
     Indication: PSORIASIS
     Dosage: 80MG DAY 1 (2 PENS)
     Dates: start: 20111128
  3. SYLVIA [Concomitant]
     Indication: OVARIAN CYST
  4. CHANTIX [Concomitant]
     Indication: SMOKING CESSATION THERAPY
  5. MIRAPEX [Concomitant]
     Indication: RESTLESS LEGS SYNDROME
     Dosage: AT BEDTIME

REACTIONS (4)
  - INJECTION SITE HAEMATOMA [None]
  - MYALGIA [None]
  - INJECTION SITE PAIN [None]
  - INJECTION SITE NODULE [None]
